FAERS Safety Report 5231905-X (Version None)
Quarter: 2007Q1

REPORT INFORMATION
  Report Type: 
  Country: None (occurrence: None)
  Receive Date: 20070206
  Receipt Date: 20070126
  Transmission Date: 20070707
  Serious: Yes (Other)
  Sender: FDA-Public Use
  Company Number: DK-PFIZER INC-2007005211

PATIENT
  Sex: Female

DRUGS (4)
  1. CHANTIX [Suspect]
     Indication: SMOKING CESSATION THERAPY
     Route: 048
     Dates: start: 20061201, end: 20070121
  2. AMLODIPINE [Concomitant]
     Route: 048
  3. ESTROGENS [Concomitant]
     Route: 048
  4. METOPROLOL SUCCINATE [Concomitant]
     Route: 048

REACTIONS (6)
  - ABNORMAL DREAMS [None]
  - BREAST CANCER [None]
  - INSOMNIA [None]
  - MUSCLE SPASMS [None]
  - MYALGIA [None]
  - NAUSEA [None]
